FAERS Safety Report 8236857-6 (Version None)
Quarter: 2012Q1

REPORT INFORMATION
  Report Type: 
  Country: None (occurrence: None)
  Receive Date: 20120327
  Receipt Date: 20111202
  Transmission Date: 20120608
  Serious: No
  Sender: FDA-Public Use
  Company Number: US-GLAXOSMITHKLINE-A0956478A

PATIENT
  Age: 68 Year
  Sex: Female

DRUGS (7)
  1. VYTORIN [Concomitant]
  2. FERROUS SULFATE TAB [Concomitant]
  3. LISINOPRIL [Concomitant]
  4. ASPIRIN [Concomitant]
  5. LEVOTHYROXINE SODIUM [Concomitant]
  6. NIFEDIPINE [Concomitant]
  7. LAMICTAL [Suspect]
     Indication: CONVULSION
     Dosage: 25MG PER DAY
     Route: 048
     Dates: start: 20111201

REACTIONS (2)
  - ASTHENIA [None]
  - FATIGUE [None]
